FAERS Safety Report 17008560 (Version 1)
Quarter: 2019Q4

REPORT INFORMATION
  Report Type: Other
  Country: CN (occurrence: CN)
  Receive Date: 20191108
  Receipt Date: 20191108
  Transmission Date: 20200122
  Serious: Yes (Other)
  Sender: FDA-Public Use
  Company Number: CN-SHANGHAI HENGRUI PHARMACEUTICAL CO., LTD.-2076625

PATIENT
  Age: 4 Year
  Sex: Male
  Weight: 15.6 kg

DRUGS (1)
  1. SEVOFLURANE USP, 100%, LIQUID FOR INHALATION [Suspect]
     Active Substance: SEVOFLURANE
     Indication: ASTHENIA
     Route: 055
     Dates: start: 20191022, end: 20191022

REACTIONS (2)
  - Erythema [Recovered/Resolved]
  - Pyrexia [Recovered/Resolved]

NARRATIVE: CASE EVENT DATE: 20191022
